FAERS Safety Report 23694517 (Version 1)
Quarter: 2024Q2

REPORT INFORMATION
  Report Type: Report from Study
  Country: AR (occurrence: AR)
  Receive Date: 20240401
  Receipt Date: 20240401
  Transmission Date: 20240716
  Serious: Yes (Death)
  Sender: FDA-Public Use
  Company Number: AR-MALLINCKRODT-MNK202402251

PATIENT
  Age: 15 Year
  Sex: Female
  Weight: 46 kg

DRUGS (2)
  1. UVADEX [Suspect]
     Active Substance: METHOXSALEN
     Indication: Acute graft versus host disease
     Dosage: 2 SESSIONS PER WEEK CONDUCTED FOR 4 WEEKS
     Route: 050
  2. MYCOPHENOLATE MOFETIL [Concomitant]
     Active Substance: MYCOPHENOLATE MOFETIL
     Dosage: UNK

REACTIONS (3)
  - Acute graft versus host disease [Fatal]
  - Disease progression [Fatal]
  - Drug ineffective for unapproved indication [Unknown]
